FAERS Safety Report 13797071 (Version 2)
Quarter: 2017Q3

REPORT INFORMATION
  Report Type: Not Available
  Country: US (occurrence: US)
  Receive Date: 20170727
  Receipt Date: 20170921
  Transmission Date: 20171127
  Serious: No
  Sender: FDA-Public Use
  Company Number: US-NEUROCRINE BIOSCIENCES INC.-2017NBI00327

PATIENT
  Age: 45 Year
  Sex: Female

DRUGS (18)
  1. BACLOFEN. [Concomitant]
     Active Substance: BACLOFEN
  2. HYDROCODONE-APAP [Concomitant]
     Active Substance: ACETAMINOPHEN\HYDROCODONE
  3. OMEPRAZOLE. [Concomitant]
     Active Substance: OMEPRAZOLE
  4. ZALEPLON. [Concomitant]
     Active Substance: ZALEPLON
  5. ALPRAZOLAM. [Concomitant]
     Active Substance: ALPRAZOLAM
  6. LITHIUM. [Concomitant]
     Active Substance: LITHIUM
  7. MULTIVITAMIN [Concomitant]
     Active Substance: VITAMINS
  8. PRAVASTATIN. [Concomitant]
     Active Substance: PRAVASTATIN
  9. PRENATAL VITAMIN [Concomitant]
     Active Substance: VITAMINS
  10. ADDERALL [Concomitant]
     Active Substance: AMPHETAMINE ASPARTATE\AMPHETAMINE SULFATE\DEXTROAMPHETAMINE SACCHARATE\DEXTROAMPHETAMINE SULFATE
  11. EVEKEO [Concomitant]
     Active Substance: AMPHETAMINE SULFATE
  12. LEXAPRO [Concomitant]
     Active Substance: ESCITALOPRAM OXALATE
  13. INGREZZA [Suspect]
     Active Substance: VALBENAZINE
     Indication: PRODUCT USED FOR UNKNOWN INDICATION
     Dosage: ACCIDENTLY TOOK 80 MG ON 2ND DAY OF TREATMENT
     Route: 048
     Dates: start: 201706
  14. SUMATRIPTAN. [Concomitant]
     Active Substance: SUMATRIPTAN
  15. INGREZZA [Suspect]
     Active Substance: VALBENAZINE
     Route: 048
     Dates: start: 2017
  16. AMITIZA [Concomitant]
     Active Substance: LUBIPROSTONE
  17. METHYLPREDNISOLONE. [Concomitant]
     Active Substance: METHYLPREDNISOLONE
  18. MELATONIN [Concomitant]
     Active Substance: MELATONIN

REACTIONS (4)
  - Dizziness [Unknown]
  - Incorrect dose administered [Unknown]
  - Dyskinesia [Not Recovered/Not Resolved]
  - Feeling abnormal [Unknown]

NARRATIVE: CASE EVENT DATE: 20170615
